FAERS Safety Report 18100393 (Version 1)
Quarter: 2020Q3

REPORT INFORMATION
  Report Type: Spontaneous
  Country: US (occurrence: US)
  Receive Date: 20200731
  Receipt Date: 20200731
  Transmission Date: 20201103
  Serious: No
  Sender: FDA-Public Use
  Company Number: US-TEVA-2020-US-1809412

PATIENT
  Age: 24 Year
  Sex: Female

DRUGS (1)
  1. JUNEL FE 1/20 [Suspect]
     Active Substance: ETHINYL ESTRADIOL\NORETHINDRONE ACETATE
     Indication: MENSTRUAL CYCLE MANAGEMENT
     Dosage: FORM STRENGTH: 1 MG/20 MCG, START DATE: 3 YEARS
     Route: 065

REACTIONS (3)
  - Product availability issue [Unknown]
  - Drug ineffective [Unknown]
  - Menstrual disorder [Unknown]

NARRATIVE: CASE EVENT DATE: 202006
